FAERS Safety Report 6229932-9 (Version None)
Quarter: 2009Q2

REPORT INFORMATION
  Report Type: 
  Country: None (occurrence: None)
  Receive Date: 20090615
  Receipt Date: 20090603
  Transmission Date: 20091009
  Serious: Yes (Hospitalization)
  Sender: FDA-Public Use
  Company Number: IT-ELI_LILLY_AND_COMPANY-IT200905005343

PATIENT
  Age: 58 Year
  Sex: Male

DRUGS (14)
  1. BYETTA [Suspect]
     Dosage: 5 UG, 2/D
     Route: 065
     Dates: start: 20090101, end: 20090225
  2. BYETTA [Suspect]
     Dosage: 5 UG, DAILY (1/D)
     Route: 065
     Dates: start: 20090308, end: 20090326
  3. BYETTA [Suspect]
     Dosage: 5 UG, 2/D
     Route: 065
     Dates: start: 20090326, end: 20090101
  4. OMEPRAZOLE [Concomitant]
     Dosage: 20 MG, UNKNOWN
     Route: 065
  5. ALLOPURINOL [Concomitant]
     Dosage: 150 MG, UNKNOWN
     Route: 065
  6. LEVOTHYROXINE [Concomitant]
     Dosage: 125 MG, UNKNOWN
     Route: 065
  7. ATORVASTATIN CALCIUM [Concomitant]
     Dosage: 20 MG, UNKNOWN
     Route: 065
  8. LOVAZA [Concomitant]
     Dosage: 1 G, UNKNOWN
     Route: 065
  9. RAMIPRIL [Concomitant]
     Dosage: 10 MG, UNKNOWN
     Route: 065
  10. CARVEDILOL [Concomitant]
     Dosage: 25 MG, UNKNOWN
     Route: 065
  11. IRBESARTAN [Concomitant]
     Dosage: 150 MG, UNKNOWN
     Route: 065
  12. CLONIDINE [Concomitant]
     Dosage: 2 D/F, UNKNOWN
     Route: 062
  13. SPIRONOLACTONE [Concomitant]
     Dosage: 25 MG, UNKNOWN
     Route: 065
  14. METFORMIN HYDROCHLORIDE [Concomitant]
     Dosage: 500 MG, UNKNOWN
     Route: 065

REACTIONS (2)
  - CONVULSION [None]
  - HEADACHE [None]
